FAERS Safety Report 20986591 (Version 1)
Quarter: 2022Q2

REPORT INFORMATION
  Report Type: Spontaneous
  Country: CA (occurrence: CA)
  Receive Date: 20220621
  Receipt Date: 20220621
  Transmission Date: 20220720
  Serious: Yes (Death, Disabling, Other)
  Sender: FDA-Public Use
  Company Number: None

PATIENT
  Age: 60 Year
  Sex: Male

DRUGS (5)
  1. QUETIAPINE [Suspect]
     Active Substance: QUETIAPINE
     Indication: Product used for unknown indication
     Route: 065
  2. BENZTROPINE [Suspect]
     Active Substance: BENZTROPINE
     Indication: Bipolar disorder
     Route: 065
  3. CHLORPROMAZINE [Suspect]
     Active Substance: CHLORPROMAZINE
     Indication: Bipolar disorder
     Dosage: 3 EVERY 1 DAYS
     Route: 065
  4. LITHIUM [Suspect]
     Active Substance: LITHIUM
     Indication: Bipolar disorder
     Dosage: 3 EVERY 1 DAYS
     Route: 065
  5. TRIHEXYPHENIDYL [Suspect]
     Active Substance: TRIHEXYPHENIDYL
     Indication: Parkinsonism
     Dosage: 4 EVERY 1 DAYS
     Route: 065

REACTIONS (8)
  - Cerebral amyloid angiopathy [Fatal]
  - Confusional state [Fatal]
  - Dementia Alzheimer^s type [Fatal]
  - Dyskinesia [Fatal]
  - Hallucination [Fatal]
  - Parkinsonism [Fatal]
  - Tardive dyskinesia [Fatal]
  - Unmasking of previously unidentified disease [Fatal]
